FAERS Safety Report 14168090 (Version 1)
Quarter: 2017Q4

REPORT INFORMATION
  Report Type: Other
  Country: FR (occurrence: FR)
  Receive Date: 20171108
  Receipt Date: 20171108
  Transmission Date: 20180321
  Serious: Yes (Other)
  Sender: FDA-Public Use
  Company Number: FR-TAKEDA-2017MPI009836

PATIENT
  Age: 81 Year
  Sex: Male

DRUGS (7)
  1. ZOMETA [Concomitant]
     Active Substance: ZOLEDRONIC ACID
     Dosage: UNK
     Route: 065
  2. ALKERAN [Suspect]
     Active Substance: MELPHALAN
     Indication: PLASMA CELL MYELOMA
     Dosage: UNK UNK, QD
     Route: 048
     Dates: start: 20170117, end: 20170627
  3. VELCADE [Suspect]
     Active Substance: BORTEZOMIB
     Indication: PLASMA CELL MYELOMA
     Dosage: 3.5 MG, UNK
     Route: 042
     Dates: start: 20170117, end: 20170627
  4. ZELITREX [Concomitant]
     Active Substance: VALACYCLOVIR HYDROCHLORIDE
     Dosage: 500 MG, UNK
     Route: 065
  5. SPECIAFOLDINE [Concomitant]
     Active Substance: FOLIC ACID
     Dosage: 5 MG, UNK
     Route: 065
  6. PREDNISONE. [Suspect]
     Active Substance: PREDNISONE
     Indication: PLASMA CELL MYELOMA
     Dosage: 100 MG, QD
     Route: 048
     Dates: start: 20170117, end: 20170627
  7. TEMERIT [Concomitant]
     Active Substance: NEBIVOLOL
     Dosage: UNK
     Route: 065

REACTIONS (5)
  - Tachycardia [Unknown]
  - Neck pain [Recovering/Resolving]
  - Neuropathy peripheral [Recovering/Resolving]
  - Back pain [Recovering/Resolving]
  - Bundle branch block left [Unknown]

NARRATIVE: CASE EVENT DATE: 201706
